FAERS Safety Report 18862660 (Version 1)
Quarter: 2021Q1

REPORT INFORMATION
  Report Type: Spontaneous
  Country: US (occurrence: US)
  Receive Date: 20210209
  Receipt Date: 20210209
  Transmission Date: 20210420
  Serious: No
  Sender: FDA-Public Use
  Company Number: US-PURDUE PHARMA-USA-2020-0171106

PATIENT
  Sex: Male

DRUGS (2)
  1. BUTRANS [Suspect]
     Active Substance: BUPRENORPHINE
     Indication: PAIN
     Dosage: 10 MCG/HR, UNK
     Route: 062
     Dates: start: 202010
  2. OXYCODONE HYDROCHLORIDE (SIMILAR TO NDA 22?272) [Interacting]
     Active Substance: OXYCODONE HYDROCHLORIDE
     Indication: BREAKTHROUGH PAIN
     Dosage: 7.5 MG, UNK

REACTIONS (2)
  - Drug ineffective [Not Recovered/Not Resolved]
  - Inhibitory drug interaction [Not Recovered/Not Resolved]
